FAERS Safety Report 11059423 (Version 2)
Quarter: 2015Q2

REPORT INFORMATION
  Report Type: Spontaneous
  Country: DE (occurrence: DE)
  Receive Date: 20150423
  Receipt Date: 20150428
  Transmission Date: 20150821
  Serious: Yes (Hospitalization)
  Sender: FDA-Public Use
  Company Number: DE-ACTELION-A-US2015-115456

PATIENT
  Age: 79 Year
  Sex: Female
  Weight: 60 kg

DRUGS (14)
  1. SIMVASTATINE [Concomitant]
     Active Substance: SIMVASTATIN
  2. XIPAMIDE [Concomitant]
     Active Substance: XIPAMIDE
  3. VALORON N [Concomitant]
     Active Substance: NALOXONE HYDROCHLORIDE\TILIDINE HYDROCHLORIDE
  4. OXYCODON [Concomitant]
     Active Substance: OXYCODONE
  5. VENTAVIS [Suspect]
     Active Substance: ILOPROST
     Indication: PULMONARY ARTERIAL HYPERTENSION
     Dosage: 2.5 MCG, 4-6 INHALATIONS PER DAY
     Route: 055
     Dates: start: 201410, end: 201502
  6. OPSUMIT [Suspect]
     Active Substance: MACITENTAN
     Indication: PULMONARY ARTERIAL HYPERTENSION
     Dosage: UNK
     Route: 048
     Dates: start: 201404
  7. AMBRISENTAN [Concomitant]
     Active Substance: AMBRISENTAN
  8. CODEINE [Concomitant]
     Active Substance: CODEINE
  9. PANGROL [Concomitant]
  10. TORASEMIDE [Concomitant]
     Active Substance: TORSEMIDE
  11. FALITHROM [Concomitant]
     Active Substance: PHENPROCOUMON
     Dosage: UNK
     Dates: end: 201412
  12. ALENDRONIC ACID [Concomitant]
     Active Substance: ALENDRONIC ACID
  13. ALLOPURINOL. [Concomitant]
     Active Substance: ALLOPURINOL
  14. L-THYROXINE [Concomitant]
     Active Substance: LEVOTHYROXINE

REACTIONS (14)
  - Nausea [Recovered/Resolved]
  - Dyspnoea [Unknown]
  - Retching [Recovered/Resolved]
  - Inappropriate schedule of drug administration [Unknown]
  - Diarrhoea [Recovered/Resolved]
  - Chronic gastritis [Unknown]
  - Weight decreased [Unknown]
  - Hypokalaemia [Recovered/Resolved]
  - Dehydration [Recovered/Resolved]
  - Asthenia [Recovered/Resolved]
  - Dizziness [Recovered/Resolved]
  - Streptococcal sepsis [Unknown]
  - Hypotension [Unknown]
  - Blood sodium decreased [Recovered/Resolved]

NARRATIVE: CASE EVENT DATE: 2014
